FAERS Safety Report 24961650 (Version 1)
Quarter: 2025Q1

REPORT INFORMATION
  Report Type: Report from Study
  Country: US (occurrence: US)
  Receive Date: 20250212
  Receipt Date: 20250212
  Transmission Date: 20250408
  Serious: Yes (Other)
  Sender: ABBVIE
  Company Number: US-ABBVIE-6128055

PATIENT
  Sex: Female

DRUGS (1)
  1. RINVOQ [Suspect]
     Active Substance: UPADACITINIB
     Indication: Rheumatoid arthritis
     Route: 048
     Dates: start: 20240426

REACTIONS (4)
  - Subcutaneous abscess [Unknown]
  - Rash papular [Not Recovered/Not Resolved]
  - Hepatic enzyme abnormal [Unknown]
  - Hyperkeratosis [Unknown]
